FAERS Safety Report 24625176 (Version 2)
Quarter: 2024Q4

REPORT INFORMATION
  Report Type: Spontaneous
  Country: JP (occurrence: JP)
  Receive Date: 20241115
  Receipt Date: 20241129
  Transmission Date: 20250115
  Serious: Yes (Hospitalization)
  Sender: ALEXION PHARMACEUTICALS
  Company Number: JP-ASTRAZENECA-240119826_032810_P_1

PATIENT
  Age: 79 Year

DRUGS (8)
  1. BREZTRI [Suspect]
     Active Substance: BUDESONIDE\FORMOTEROL\GLYCOPYRROLATE
     Indication: Chronic obstructive pulmonary disease
     Dosage: DOSE UNKNOWN
  2. BREZTRI [Suspect]
     Active Substance: BUDESONIDE\FORMOTEROL\GLYCOPYRROLATE
     Dosage: DOSE UNKNOWN
  3. BREZTRI [Suspect]
     Active Substance: BUDESONIDE\FORMOTEROL\GLYCOPYRROLATE
     Dosage: DOSE UNKNOWN
  4. BREZTRI [Suspect]
     Active Substance: BUDESONIDE\FORMOTEROL\GLYCOPYRROLATE
     Dosage: DOSE UNKNOWN
  5. CANDESARTAN CILEXETIL/AMLODIPINE BESILATE COMBINED DRUG [Concomitant]
     Dosage: DOSE UNKNOWN
  6. CANDESARTAN CILEXETIL/AMLODIPINE BESILATE COMBINED DRUG [Concomitant]
     Dosage: DOSE UNKNOWN
  7. FEBUXOSTAT [Concomitant]
     Active Substance: FEBUXOSTAT
     Dosage: DOSE UNKNOWN
  8. FEBUXOSTAT [Concomitant]
     Active Substance: FEBUXOSTAT
     Dosage: DOSE UNKNOWN

REACTIONS (2)
  - Chronic obstructive pulmonary disease [Unknown]
  - Dyspnoea exertional [Unknown]
